FAERS Safety Report 8911689 (Version 2)
Quarter: 2012Q4

REPORT INFORMATION
  Report Type: 
  Country: JP (occurrence: JP)
  Receive Date: 20121116
  Receipt Date: 20121127
  Transmission Date: 20130627
  Serious: Yes (Other)
  Sender: FDA-Public Use
  Company Number: JP-SANOFI-AVENTIS-2012SA083335

PATIENT

DRUGS (4)
  1. DOCETAXEL [Suspect]
     Indication: LUNG CANCER
     Dosage: received bronchial arterial infusion at a dose of 43.9 mg/body
  2. DOCETAXEL [Suspect]
     Indication: ATELECTASIS
     Dosage: received bronchial arterial infusion at a dose of 43.9 mg/body
  3. CISPLATIN [Suspect]
     Indication: LUNG CANCER
     Dosage: received bronchial arterial infusion at a dose of 62.2 mg/body
  4. CISPLATIN [Suspect]
     Indication: ATELECTASIS
     Dosage: received bronchial arterial infusion at a dose of 62.2 mg/body

REACTIONS (1)
  - Paralysis [Recovered/Resolved]
